FAERS Safety Report 18452774 (Version 2)
Quarter: 2020Q4

REPORT INFORMATION
  Report Type: Spontaneous
  Country: RU (occurrence: RU)
  Receive Date: 20201102
  Receipt Date: 20201214
  Transmission Date: 20210114
  Serious: Yes (Death, Life-Threatening)
  Sender: FDA-Public Use
  Company Number: RU-PFIZER INC-2020420188

PATIENT
  Age: 71 Year
  Sex: Male
  Weight: 92 kg

DRUGS (7)
  1. ENOXAPARIN SODIUM. [Concomitant]
     Active Substance: ENOXAPARIN SODIUM
     Indication: COVID-19
     Dosage: 0.8 ML, 2X/DAY
     Dates: start: 20200617
  2. ENALAPRIL [Concomitant]
     Active Substance: ENALAPRIL
  3. BISOPROLOL [Concomitant]
     Active Substance: BISOPROLOL
     Indication: ARRHYTHMIA
     Dosage: 5 MG, 1X/DAY
     Dates: start: 20200617
  4. LEVOFLOXACIN. [Concomitant]
     Active Substance: LEVOFLOXACIN
     Indication: COVID-19
     Dosage: 1000 MG, 2X/DAY
     Dates: start: 20200617
  5. PARACETAMOL [Concomitant]
     Active Substance: ACETAMINOPHEN
     Indication: COVID-19
  6. TOFACITINIB CITRATE [Suspect]
     Active Substance: TOFACITINIB CITRATE
     Indication: COVID-19
     Dosage: 10 MG, 2X/DAY
     Route: 048
     Dates: start: 20200620
  7. ATORVASTATIN [Concomitant]
     Active Substance: ATORVASTATIN

REACTIONS (4)
  - Myocardial ischaemia [Fatal]
  - Off label use [Unknown]
  - Cardiac aneurysm [Fatal]
  - COVID-19 pneumonia [Fatal]

NARRATIVE: CASE EVENT DATE: 20200620
